FAERS Safety Report 10717884 (Version 1)
Quarter: 2015Q1

REPORT INFORMATION
  Report Type: Report from Study
  Country: SE (occurrence: SE)
  Receive Date: 20150116
  Receipt Date: 20150116
  Transmission Date: 20150721
  Serious: Yes (Hospitalization)
  Sender: FDA-Public Use
  Company Number: SE-ABBVIE-14P-150-1317565-00

PATIENT
  Age: 61 Year
  Sex: Male

DRUGS (2)
  1. TASMAR [Concomitant]
     Active Substance: TOLCAPONE
     Indication: PRODUCT USED FOR UNKNOWN INDICATION
  2. DUODOPA [Suspect]
     Active Substance: CARBIDOPA\LEVODOPA
     Indication: PARKINSON^S DISEASE
     Dosage: MD:2.5ML-ONCE OR TWICE:CD:3.4-3.5ML/H:ED:1.6ML
     Route: 050
     Dates: start: 20100801

REACTIONS (12)
  - Stoma site abscess [Unknown]
  - Melaena [Not Recovered/Not Resolved]
  - Stoma site infection [Recovering/Resolving]
  - Device issue [Not Recovered/Not Resolved]
  - Device dislocation [Recovered/Resolved]
  - Incorrect dose administered [Unknown]
  - Abdominal pain [Not Recovered/Not Resolved]
  - Dyskinesia [Unknown]
  - Catheter site discharge [Not Recovered/Not Resolved]
  - Gastric disorder [Not Recovered/Not Resolved]
  - Speech disorder [Unknown]
  - Depression [Unknown]

NARRATIVE: CASE EVENT DATE: 2013
